FAERS Safety Report 23145026 (Version 1)
Quarter: 2023Q4

REPORT INFORMATION
  Report Type: Spontaneous
  Country: US (occurrence: None)
  Receive Date: 20231103
  Receipt Date: 20231103
  Transmission Date: 20240110
  Serious: Yes (Hospitalization)
  Sender: FDA-Public Use
  Company Number: None

PATIENT
  Sex: Male

DRUGS (2)
  1. NOVOSEVEN RT [Suspect]
     Active Substance: COAGULATION FACTOR VIIA RECOMBINANT HUMAN
     Indication: Platelet disorder
     Dosage: FREQUENCY : DAILY;?OTHER ROUTE : IV;?
     Route: 050
     Dates: start: 202104
  2. NORMAL SALINE FLUSH (10ML) [Concomitant]

REACTIONS (2)
  - Mouth haemorrhage [None]
  - Epistaxis [None]
